FAERS Safety Report 5790569-7 (Version None)
Quarter: 2008Q2

REPORT INFORMATION
  Report Type: 
  Country: None (occurrence: None)
  Receive Date: 20080626
  Receipt Date: 20080501
  Transmission Date: 20081010
  Serious: No
  Sender: FDA-Public Use
  Company Number: A0725768A

PATIENT
  Age: 23 Year
  Sex: Male
  Weight: 72 kg

DRUGS (2)
  1. ALLI [Suspect]
     Dates: start: 20080426
  2. ALCOHOL [Concomitant]

REACTIONS (1)
  - CHEST PAIN [None]
